FAERS Safety Report 5041386-7 (Version None)
Quarter: 2006Q2

REPORT INFORMATION
  Report Type: 
  Country: None (occurrence: None)
  Receive Date: 20060626
  Receipt Date: 20060615
  Transmission Date: 20061013
  Serious: Yes (Death)
  Sender: FDA-Public Use
  Company Number: 225484

PATIENT
  Age: 63 Year
  Sex: Female
  Weight: 50 kg

DRUGS (4)
  1. AVASTIN [Suspect]
     Indication: NON-SMALL CELL LUNG CANCER
     Dosage: 15 MG/KG, INTRAVENOUS
     Route: 042
     Dates: start: 20060505
  2. CARBOPLATIN [Concomitant]
  3. TAXOL [Concomitant]
  4. LORAZEPAM [Concomitant]

REACTIONS (4)
  - EPISTAXIS [None]
  - MOUTH HAEMORRHAGE [None]
  - POST PROCEDURAL COMPLICATION [None]
  - TUMOUR HAEMORRHAGE [None]
